FAERS Safety Report 10654459 (Version 4)
Quarter: 2015Q1

REPORT INFORMATION
  Report Type: Spontaneous
  Country: US (occurrence: US)
  Receive Date: 20141216
  Receipt Date: 20150327
  Transmission Date: 20150720
  Serious: Yes (Disabling, Other)
  Sender: FDA-Public Use
  Company Number: US-009507513-1204USA04473

PATIENT
  Sex: Male

DRUGS (1)
  1. PROPECIA [Suspect]
     Active Substance: FINASTERIDE
     Indication: ALOPECIA
     Dosage: 1 MG, QD
     Route: 048
     Dates: start: 1998

REACTIONS (24)
  - Chronic gastritis [Not Recovered/Not Resolved]
  - Anxiety [Unknown]
  - Spinal laminectomy [Unknown]
  - Hiatus hernia [Not Recovered/Not Resolved]
  - Spinal fusion surgery [Unknown]
  - Blood cholesterol increased [Unknown]
  - Libido decreased [Unknown]
  - Marital problem [Unknown]
  - Hypertension [Unknown]
  - Nodule [Unknown]
  - Sexual dysfunction [Unknown]
  - Balanoposthitis [Unknown]
  - Benign prostatic hyperplasia [Unknown]
  - Depression [Unknown]
  - Phimosis [Unknown]
  - Type II hyperlipidaemia [Not Recovered/Not Resolved]
  - Back pain [Not Recovered/Not Resolved]
  - Cognitive disorder [Unknown]
  - Ejaculation disorder [Unknown]
  - Gastrointestinal disorder [Unknown]
  - Circumcision [Unknown]
  - Erectile dysfunction [Not Recovered/Not Resolved]
  - Ejaculation failure [Unknown]
  - Gastrointestinal disorder [Unknown]

NARRATIVE: CASE EVENT DATE: 199811
